FAERS Safety Report 9790798 (Version 3)
Quarter: 2014Q1

REPORT INFORMATION
  Report Type: Spontaneous
  Country: US (occurrence: US)
  Receive Date: 20131231
  Receipt Date: 20140121
  Transmission Date: 20141002
  Serious: Yes (Death, Hospitalization)
  Sender: FDA-Public Use
  Company Number: US-ACTELION-A-US2013-92973

PATIENT
  Age: 75 Year
  Sex: Female

DRUGS (11)
  1. OPSUMIT [Suspect]
     Indication: PORTOPULMONARY HYPERTENSION
     Dosage: UNK
     Route: 048
     Dates: start: 201312, end: 20131211
  2. REMODULIN [Concomitant]
     Route: 058
  3. ADCIRCA [Concomitant]
  4. LASIX [Concomitant]
  5. KCL [Concomitant]
  6. LEVOXYL [Concomitant]
  7. MAG OXIDE [Concomitant]
  8. OXYCODONE [Concomitant]
  9. ASA [Concomitant]
  10. SPIRONOLACTONE [Concomitant]
  11. URSODIOL [Concomitant]

REACTIONS (10)
  - Hepatic failure [Fatal]
  - Ascites [Fatal]
  - Splenomegaly [Fatal]
  - Abdominal pain [Fatal]
  - Nausea [Fatal]
  - Renal failure [Fatal]
  - Respiratory failure [Fatal]
  - Right ventricular failure [Not Recovered/Not Resolved]
  - Dyspnoea [Not Recovered/Not Resolved]
  - Fluid retention [Not Recovered/Not Resolved]
